FAERS Safety Report 13883317 (Version 1)
Quarter: 2017Q3

REPORT INFORMATION
  Report Type: Spontaneous
  Country: US (occurrence: US)
  Receive Date: 20170818
  Receipt Date: 20170818
  Transmission Date: 20171127
  Serious: No
  Sender: FDA-Public Use
  Company Number: GXBR2017US001631

PATIENT
  Sex: Female

DRUGS (2)
  1. DOXEPIN HCL CAPSULES USP [Suspect]
     Active Substance: DOXEPIN HYDROCHLORIDE
     Indication: HYPERSENSITIVITY
     Route: 065
  2. DOXEPIN HCL CAPSULES USP [Suspect]
     Active Substance: DOXEPIN HYDROCHLORIDE
     Indication: URTICARIA

REACTIONS (3)
  - Presyncope [Unknown]
  - Dizziness [Unknown]
  - Product use in unapproved indication [Unknown]
